FAERS Safety Report 9148825 (Version 2)
Quarter: 2013Q1

REPORT INFORMATION
  Report Type: Spontaneous
  Country: AT (occurrence: AT)
  Receive Date: 20130308
  Receipt Date: 20130313
  Transmission Date: 20140127
  Serious: Yes (Hospitalization)
  Sender: FDA-Public Use
  Company Number: AT-B.I. PHARMACEUTICALS,INC./RIDGEFIELD-2013-AP-00186AP

PATIENT
  Age: 78 Year
  Sex: Male
  Weight: 85 kg

DRUGS (9)
  1. PRADAXA [Suspect]
     Indication: ATRIAL FIBRILLATION
     Dosage: 300 MG
     Dates: start: 201206, end: 20121002
  2. PRADAXA [Suspect]
     Dosage: 300 MG
  3. CONCOR [Concomitant]
     Indication: HYPERTENSION
     Dosage: 2.5 MG
     Route: 048
  4. VALSARTAN [Concomitant]
     Indication: HYPERTENSION
     Dosage: 160 MG
     Route: 048
  5. EUTHYROX [Concomitant]
     Indication: THYROIDECTOMY
     Dosage: 125 MCG
  6. GLUCOPHAGE [Concomitant]
     Indication: TYPE 2 DIABETES MELLITUS
     Dosage: 850 MG
  7. AGOPTON [Concomitant]
  8. AMLODILAN [Concomitant]
     Indication: HYPERTENSION
  9. AMLODIPIN [Concomitant]

REACTIONS (3)
  - Hypertensive crisis [Recovered/Resolved]
  - Local swelling [Recovered/Resolved]
  - Muscle haemorrhage [Recovered/Resolved]
